FAERS Safety Report 15941666 (Version 1)
Quarter: 2019Q1

REPORT INFORMATION
  Report Type: Spontaneous
  Country: US (occurrence: US)
  Receive Date: 20190209
  Receipt Date: 20190209
  Transmission Date: 20190417
  Serious: No
  Sender: FDA-Public Use
  Company Number: None

PATIENT
  Age: 80 Year
  Sex: Male
  Weight: 76.5 kg

DRUGS (20)
  1. SPIRONOLACTON [Concomitant]
     Active Substance: SPIRONOLACTONE
  2. OXYBUTYNIN CL ER [Concomitant]
     Active Substance: OXYBUTYNIN CHLORIDE
  3. CENTRUM SILVER [Concomitant]
     Active Substance: MINERALS\VITAMINS
  4. FOLIC ACID. [Concomitant]
     Active Substance: FOLIC ACID
  5. JANUMET [Concomitant]
     Active Substance: METFORMIN HYDROCHLORIDE\SITAGLIPTIN PHOSPHATE
  6. FLO MAX [Concomitant]
  7. ATORVASTATIN [Concomitant]
     Active Substance: ATORVASTATIN
  8. CITRUCEL [Concomitant]
     Active Substance: METHYLCELLULOSE (4000 MPA.S)
  9. VITAMIN D3 [Concomitant]
     Active Substance: CHOLECALCIFEROL
  10. REVLIMID [Concomitant]
     Active Substance: LENALIDOMIDE
  11. DEXAMETHESONE [Concomitant]
  12. OMEPRAZOLE DR 40 MG CAPSULES [Suspect]
     Active Substance: OMEPRAZOLE
     Indication: GASTROOESOPHAGEAL REFLUX DISEASE
     Dosage: ?          QUANTITY:1 CAPSULE(S);?
     Route: 048
  13. LIALDA [Concomitant]
     Active Substance: MESALAMINE
  14. FISH OIL [Concomitant]
     Active Substance: FISH OIL
  15. LOSARTON [Concomitant]
  16. VIBERZI [Concomitant]
     Active Substance: ELUXADOLINE
  17. CALTRATE [Concomitant]
     Active Substance: CALCIUM CARBONATE
  18. ROPINIROLE HCL [Concomitant]
     Active Substance: ROPINIROLE HYDROCHLORIDE
  19. ASPIRIN. [Concomitant]
     Active Substance: ASPIRIN
  20. PROBIATIC [Concomitant]

REACTIONS (7)
  - Rash [None]
  - Thrombocytopenia [None]
  - Product availability issue [None]
  - Gait disturbance [None]
  - Peripheral swelling [None]
  - Skin exfoliation [None]
  - Product substitution issue [None]

NARRATIVE: CASE EVENT DATE: 20181107
